FAERS Safety Report 6570536-6 (Version None)
Quarter: 2010Q1

REPORT INFORMATION
  Report Type: 
  Country: None (occurrence: None)
  Receive Date: 20100204
  Receipt Date: 20100128
  Transmission Date: 20100710
  Serious: Yes (Hospitalization, Disabling)
  Sender: FDA-Public Use
  Company Number: FR-JNJFOC-20080305941

PATIENT
  Age: 55 Year
  Sex: Male

DRUGS (13)
  1. TAVANIC [Suspect]
     Indication: BRONCHITIS
     Route: 048
     Dates: start: 20080228, end: 20080229
  2. KARDEGESIC [Concomitant]
     Route: 048
  3. NITROGLYCERIN [Concomitant]
     Dosage: 1 U TABLETS
     Route: 048
  4. BECOTIDE [Concomitant]
     Route: 055
  5. CRESTOR [Concomitant]
     Route: 048
  6. ALDACTONE [Concomitant]
     Route: 048
  7. LISINOPRIL [Concomitant]
  8. LEXOMIL [Concomitant]
     Dosage: 0.5 U
     Route: 048
  9. HEXAQUINE [Concomitant]
     Dosage: 1 U TABLETS
     Route: 048
  10. TANAKAN [Concomitant]
     Dosage: 3 U TABLETS
     Route: 048
  11. COMBIVENT [Concomitant]
     Dosage: 2 U
     Route: 055
  12. ZESTOR [Concomitant]
     Route: 048
  13. CRESTOR [Concomitant]
     Route: 048

REACTIONS (3)
  - INTENTIONAL DRUG MISUSE [None]
  - TENDON RUPTURE [None]
  - TENDONITIS [None]
